FAERS Safety Report 8837152 (Version 2)
Quarter: 2012Q4

REPORT INFORMATION
  Report Type: 
  Country: US (occurrence: US)
  Receive Date: 20121012
  Receipt Date: 20121030
  Transmission Date: 20130627
  Serious: Yes (Death, Other)
  Sender: FDA-Public Use
  Company Number: PHEH2012US020016

PATIENT
  Age: 90 Year
  Sex: Female
  Weight: 58.05 kg

DRUGS (1)
  1. GLEEVEC [Suspect]
     Indication: CHRONIC MYELOID LEUKAEMIA
     Dosage: 400 mg (4 tablets), daily
     Route: 048
     Dates: start: 20110623, end: 201209

REACTIONS (4)
  - Death [Fatal]
  - Peripheral arterial occlusive disease [Unknown]
  - Asthenia [Unknown]
  - Memory impairment [Unknown]
